FAERS Safety Report 15804285 (Version 1)
Quarter: 2019Q1

REPORT INFORMATION
  Report Type: Spontaneous
  Country: DE (occurrence: DE)
  Receive Date: 20190109
  Receipt Date: 20190109
  Transmission Date: 20190417
  Serious: Yes (Other)
  Sender: FDA-Public Use
  Company Number: DE-TEVA-2019-DE-996548

PATIENT
  Age: 1 Day
  Sex: Male
  Weight: 2.53 kg

DRUGS (1)
  1. TRIMIPRAMINE [Suspect]
     Active Substance: TRIMIPRAMINE
     Indication: SLEEP DISORDER
     Dosage: 13 [MG/D ]/ 7-13 MG/D
     Route: 064
     Dates: start: 20171003, end: 20180629

REACTIONS (2)
  - Small for dates baby [Recovering/Resolving]
  - Foetal exposure during pregnancy [Unknown]

NARRATIVE: CASE EVENT DATE: 20180629
